FAERS Safety Report 8420413-0 (Version None)
Quarter: 2012Q2

REPORT INFORMATION
  Report Type: 
  Country: None (occurrence: None)
  Receive Date: 20120607
  Receipt Date: 20120531
  Transmission Date: 20120825
  Serious: Yes (Hospitalization)
  Sender: FDA-Public Use
  Company Number: KR-ELI_LILLY_AND_COMPANY-KR201204008124

PATIENT
  Age: 83 Year
  Sex: Female

DRUGS (3)
  1. DRUG USED IN DIABETES [Concomitant]
  2. BYETTA [Suspect]
     Indication: TYPE 2 DIABETES MELLITUS
     Dosage: 5 UG, BID
     Route: 058
     Dates: start: 20120419, end: 20120421
  3. ANTIHYPERTENSIVES [Concomitant]

REACTIONS (5)
  - NAUSEA [None]
  - GENERAL PHYSICAL HEALTH DETERIORATION [None]
  - VOMITING [None]
  - SLEEP DISORDER [None]
  - BLOOD GLUCOSE INCREASED [None]
